FAERS Safety Report 5293010-6 (Version None)
Quarter: 2007Q2

REPORT INFORMATION
  Report Type: 
  Country: None (occurrence: None)
  Receive Date: 20070411
  Receipt Date: 20070402
  Transmission Date: 20071010
  Serious: Yes (Life-Threatening, Hospitalization)
  Sender: FDA-Public Use
  Company Number: JP-ELI_LILLY_AND_COMPANY-JP200703003552

PATIENT
  Age: 60 Year
  Sex: Male
  Weight: 52 kg

DRUGS (6)
  1. ZYPREXA [Suspect]
     Indication: SCHIZOPHRENIA
     Dosage: 20 MG, DAILY (1/D)
     Route: 048
     Dates: start: 20070221, end: 20070225
  2. SILECE [Concomitant]
     Dosage: 1 MG, DAILY (1/D)
     Route: 065
     Dates: start: 20070221, end: 20070228
  3. ZYPREXA [Suspect]
     Dosage: 5 MG, DAILY (1/D)
     Route: 048
     Dates: start: 20070226, end: 20070228
  4. NU-LOTAN [Concomitant]
     Dosage: 1 D/F, DAILY (1/D)
     Route: 048
     Dates: end: 20070228
  5. NORVASC [Concomitant]
     Dosage: 1 D/F, DAILY (1/D)
     Route: 048
     Dates: end: 20070228
  6. FLUITRAN [Concomitant]
     Dosage: 1 D/F, DAILY (1/D)
     Route: 048
     Dates: end: 20070228

REACTIONS (1)
  - NEUROLEPTIC MALIGNANT SYNDROME [None]
